FAERS Safety Report 14235500 (Version 1)
Quarter: 2017Q4

REPORT INFORMATION
  Report Type: Spontaneous
  Country: US (occurrence: US)
  Receive Date: 20171129
  Receipt Date: 20171129
  Transmission Date: 20180321
  Serious: Yes (Other)
  Sender: FDA-Public Use
  Company Number: US-AUROBINDO-AUR-APL-2017-43740

PATIENT
  Age: 56 Year
  Sex: Female

DRUGS (2)
  1. PREDNISONE. [Suspect]
     Active Substance: PREDNISONE
     Indication: PRODUCT USED FOR UNKNOWN INDICATION
     Dosage: UNK
     Route: 065
  2. PREDNISONE. [Suspect]
     Active Substance: PREDNISONE
     Dosage: UNK
     Route: 065
     Dates: start: 201309, end: 201412

REACTIONS (16)
  - Pleural effusion [Recovered/Resolved]
  - Splenic lesion [Recovered/Resolved]
  - Sinusitis [Unknown]
  - Pharyngeal oedema [Unknown]
  - Lymphadenopathy mediastinal [Unknown]
  - Condition aggravated [Recovered/Resolved]
  - Interstitial lung disease [Recovered/Resolved]
  - Wheezing [Unknown]
  - Swelling [Unknown]
  - Myasthenia gravis [Unknown]
  - Nasal ulcer [Unknown]
  - Rhinitis [Unknown]
  - Extraocular muscle paresis [Unknown]
  - Pleuritic pain [Recovered/Resolved]
  - Tongue ulceration [Unknown]
  - Diplopia [Unknown]

NARRATIVE: CASE EVENT DATE: 201302
